FAERS Safety Report 5500853-X (Version None)
Quarter: 2007Q4

REPORT INFORMATION
  Report Type: 
  Country: None (occurrence: None)
  Receive Date: 20071029
  Receipt Date: 20071022
  Transmission Date: 20080405
  Serious: Yes (Other)
  Sender: FDA-Public Use
  Company Number: B0493016A

PATIENT
  Age: 42 Year
  Sex: Female
  Weight: 119 kg

DRUGS (4)
  1. SEREVENT [Suspect]
     Indication: CHRONIC OBSTRUCTIVE PULMONARY DISEASE
     Dosage: 50UG TWICE PER DAY
     Route: 055
     Dates: start: 20070907, end: 20070910
  2. BECLOMETHASONE DIPROPIONATE [Concomitant]
     Indication: CHRONIC OBSTRUCTIVE PULMONARY DISEASE
     Route: 055
     Dates: start: 20040101
  3. IPRATROPIUM BROMIDE [Concomitant]
     Indication: CHRONIC OBSTRUCTIVE PULMONARY DISEASE
     Dosage: 20UG THREE TIMES PER DAY
     Dates: start: 20050401
  4. SALBUTAMOL [Concomitant]
     Indication: CHRONIC OBSTRUCTIVE PULMONARY DISEASE
     Dosage: 100UG AS REQUIRED
     Route: 055
     Dates: start: 20050401

REACTIONS (3)
  - FEELING ABNORMAL [None]
  - HEADACHE [None]
  - RASH [None]
